FAERS Safety Report 7726808-2 (Version None)
Quarter: 2011Q3

REPORT INFORMATION
  Report Type: 
  Country: None (occurrence: None)
  Receive Date: 20110902
  Receipt Date: 20110722
  Transmission Date: 20111222
  Serious: Yes (Other)
  Sender: FDA-Public Use
  Company Number: DE-GLAXOSMITHKLINE-B0735407A

PATIENT
  Age: 48 Year
  Sex: Female

DRUGS (1)
  1. NARATRIPTAN [Suspect]
     Indication: MIGRAINE
     Dosage: 1TAB TWICE PER DAY
     Route: 065

REACTIONS (5)
  - NAUSEA [None]
  - DIZZINESS [None]
  - SENSORY DISTURBANCE [None]
  - SYNCOPE [None]
  - BLOOD PRESSURE INCREASED [None]
